FAERS Safety Report 11660899 (Version 2)
Quarter: 2015Q4

REPORT INFORMATION
  Report Type: Spontaneous
  Country: JP (occurrence: JP)
  Receive Date: 20151026
  Receipt Date: 20151109
  Transmission Date: 20160304
  Serious: Yes (Hospitalization)
  Sender: FDA-Public Use
  Company Number: JP-ELI_LILLY_AND_COMPANY-JP201509004118

PATIENT
  Age: 73 Year
  Sex: Female
  Weight: 58 kg

DRUGS (8)
  1. PACLITAXEL. [Concomitant]
     Active Substance: PACLITAXEL
     Indication: GASTRIC CANCER STAGE IV
     Dosage: 80 MG, OTHER
     Route: 042
     Dates: start: 20150723
  2. PARIET [Concomitant]
     Active Substance: RABEPRAZOLE SODIUM
     Dosage: UNK
  3. XARELTO [Concomitant]
     Active Substance: RIVAROXABAN
     Dosage: 10 MG, BID
  4. CYRAMZA [Suspect]
     Active Substance: RAMUCIRUMAB
     Indication: GASTRIC CANCER STAGE IV
     Dosage: 450 MG, OTHER
     Route: 042
     Dates: start: 20150723
  5. BEZATOL [Concomitant]
     Active Substance: BEZAFIBRATE
     Dosage: 200 MG, BID
  6. MAGLAX [Concomitant]
     Active Substance: MAGNESIUM OXIDE
     Dosage: UNK
  7. AMLODIN [Concomitant]
     Active Substance: AMLODIPINE BESYLATE
     Dosage: UNK
  8. FERROMIA [Concomitant]
     Active Substance: FERROUS CITRATE
     Dosage: UNK

REACTIONS (2)
  - Peritonitis [Recovered/Resolved]
  - Ileus paralytic [Recovering/Resolving]

NARRATIVE: CASE EVENT DATE: 201508
